FAERS Safety Report 23253077 (Version 2)
Quarter: 2024Q1

REPORT INFORMATION
  Report Type: Spontaneous
  Country: DE (occurrence: None)
  Receive Date: 20231201
  Receipt Date: 20240226
  Transmission Date: 20240410
  Serious: Yes (Hospitalization)
  Sender: FDA-Public Use
  Company Number: DE-ROCHE-3415693

PATIENT
  Sex: Female

DRUGS (2)
  1. OCREVUS [Suspect]
     Active Substance: OCRELIZUMAB
     Indication: Multiple sclerosis
     Dosage: LAST INFUSION IN MAR/2023
     Route: 065
  2. HERCEPTIN [Suspect]
     Active Substance: TRASTUZUMAB
     Indication: Breast cancer
     Route: 065

REACTIONS (28)
  - HER2 positive breast cancer [Unknown]
  - Gynaecological examination abnormal [Unknown]
  - Fatigue [Unknown]
  - Infection [Unknown]
  - Chronic fatigue syndrome [Unknown]
  - Depression [Unknown]
  - Polyneuropathy [Unknown]
  - Blood osmolarity increased [Unknown]
  - Blood immunoglobulin M decreased [Unknown]
  - White blood cell count increased [Unknown]
  - Platelet count increased [Unknown]
  - Neutrophil count increased [Unknown]
  - Monocyte count increased [Unknown]
  - Mean cell haemoglobin concentration increased [Unknown]
  - B-lymphocyte count decreased [Unknown]
  - T-lymphocyte count increased [Unknown]
  - CD4 lymphocytes increased [Unknown]
  - T-lymphocyte count decreased [Unknown]
  - Sinusitis [Unknown]
  - Blood albumin decreased [Unknown]
  - C-reactive protein increased [Unknown]
  - Immunoglobulins increased [Unknown]
  - Blood folate increased [Unknown]
  - Activated partial thromboplastin time shortened [Unknown]
  - Blood glucose increased [Unknown]
  - CSF oligoclonal band present [Unknown]
  - Hyperkalaemia [Unknown]
  - Lymphocyte count decreased [Unknown]
